FAERS Safety Report 5650420-2 (Version None)
Quarter: 2008Q1

REPORT INFORMATION
  Report Type: 
  Country: None (occurrence: None)
  Receive Date: 20080304
  Receipt Date: 20080304
  Transmission Date: 20080703
  Serious: Yes (Life-Threatening)
  Sender: FDA-Public Use
  Company Number: None

PATIENT
  Sex: Male

DRUGS (2)
  1. CASPOFUNGIN 20MG/100ML MERCK [Suspect]
     Indication: PNEUMONIA FUNGAL
     Dosage: 20MG DAILY IV
     Route: 042
     Dates: start: 20080204, end: 20080211
  2. CASPOFUNGIN 20MG/100ML MERCK [Suspect]
     Indication: PNEUMONIA FUNGAL
     Dosage: 20MG DAILY IV
     Route: 042
     Dates: start: 20080228, end: 20080228

REACTIONS (4)
  - DYSPNOEA [None]
  - EMOTIONAL DISORDER [None]
  - ERYTHEMA [None]
  - ILL-DEFINED DISORDER [None]
